FAERS Safety Report 24399637 (Version 2)
Quarter: 2024Q4

REPORT INFORMATION
  Report Type: Spontaneous
  Country: US (occurrence: US)
  Receive Date: 20241005
  Receipt Date: 20241008
  Transmission Date: 20250115
  Serious: No
  Sender: ROCHE
  Company Number: US-ROCHE-10000095649

PATIENT
  Age: 35 Year
  Sex: Female

DRUGS (7)
  1. TAMIFLU [Suspect]
     Active Substance: OSELTAMIVIR PHOSPHATE
     Indication: Influenza
     Route: 065
  2. HELIOX [Concomitant]
     Active Substance: OXYGEN
  3. METHADONE [Concomitant]
     Active Substance: METHADONE HYDROCHLORIDE
  4. METHYLPREDNISOLONE [Concomitant]
     Active Substance: METHYLPREDNISOLONE
     Route: 042
  5. FENTANYL [Concomitant]
     Active Substance: FENTANYL
  6. KETAMINE [Concomitant]
     Active Substance: KETAMINE
  7. PROPOFOL [Concomitant]
     Active Substance: PROPOFOL

REACTIONS (1)
  - Maternal exposure during pregnancy [Unknown]
